FAERS Safety Report 9614349 (Version 1)
Quarter: 2013Q4

REPORT INFORMATION
  Report Type: Spontaneous
  Country: US (occurrence: US)
  Receive Date: 20131011
  Receipt Date: 20131011
  Transmission Date: 20140711
  Serious: Yes (Hospitalization, Other)
  Sender: FDA-Public Use
  Company Number: US-TARO PHARMACEUTICALS U.S.A., INC-2013SUN04822

PATIENT
  Age: 56 Year
  Sex: Female

DRUGS (5)
  1. CLOBETASOL PROPIONATE OINTMENT USP, 0.05% [Suspect]
     Indication: RASH MACULAR
     Dosage: UNK UNK, BID
     Route: 061
  2. TRIAMCINOLONE ACETONIDE OINTMENT USP, 0.1% [Interacting]
     Indication: RASH MACULAR
     Dosage: UNK UNK, BID
     Route: 061
  3. TELAPREVIR [Interacting]
     Indication: CHRONIC HEPATITIS C
     Dosage: 750 MG, TID
     Route: 065
  4. PEGINTERFERON-ALFA-2A [Concomitant]
     Dosage: 180 MCG, WEEKLY
  5. RIBAVIRIN [Concomitant]
     Dosage: 1000 MG, QD

REACTIONS (2)
  - Adrenal insufficiency [Recovering/Resolving]
  - Drug interaction [Unknown]
